FAERS Safety Report 8764287 (Version 2)
Quarter: 2012Q4

REPORT INFORMATION
  Report Type: 
  Country: ZA (occurrence: ZA)
  Receive Date: 20120831
  Receipt Date: 20120925
  Transmission Date: 20130627
  Serious: Yes (Hospitalization)
  Sender: FDA-Public Use
  Company Number: ZA-NOVOPROD-359086

PATIENT
  Sex: Female

DRUGS (3)
  1. LEVEMIR FLEXPEN [Suspect]
     Indication: TYPE 1 DIABETES MELLITUS
     Dosage: 10 IU, qd
     Route: 058
     Dates: start: 201208
  2. NOVORAPID FLEXPEN [Suspect]
     Indication: TYPE 1 DIABETES MELLITUS
     Dosage: UNK
     Route: 065
     Dates: start: 201208
  3. METFORMIN [Concomitant]

REACTIONS (3)
  - Nausea [Unknown]
  - Diabetic ketoacidosis [Unknown]
  - Blood glucose abnormal [Unknown]
